FAERS Safety Report 10180803 (Version 1)
Quarter: 2014Q2

REPORT INFORMATION
  Report Type: Spontaneous
  Country: US (occurrence: US)
  Receive Date: 20140519
  Receipt Date: 20140519
  Transmission Date: 20141212
  Serious: No
  Sender: FDA-Public Use
  Company Number: US-AMGEN INC.-USASP2014015109

PATIENT
  Age: 67 Year
  Sex: Female

DRUGS (4)
  1. PROLIA [Suspect]
     Indication: PRODUCT USED FOR UNKNOWN INDICATION
     Route: 065
  2. TOPROL [Concomitant]
  3. MULTIVITAMIN                       /00097801/ [Concomitant]
  4. ASPIRIN [Concomitant]
     Dosage: 81 MG, QD

REACTIONS (5)
  - Pain [Recovered/Resolved]
  - Neuroma [Unknown]
  - Plantar fasciitis [Unknown]
  - Blood cholesterol increased [Unknown]
  - Tendon disorder [Unknown]
